FAERS Safety Report 5173806-1 (Version None)
Quarter: 2006Q4

REPORT INFORMATION
  Report Type: 
  Country: None (occurrence: None)
  Receive Date: 20061214
  Receipt Date: 20060803
  Transmission Date: 20070319
  Serious: Yes (Other)
  Sender: FDA-Public Use
  Company Number: FR-GLAXOSMITHKLINE-B0433504A

PATIENT
  Age: 58 Year
  Sex: Male

DRUGS (3)
  1. LAMICTAL [Suspect]
     Indication: NEURALGIA
     Route: 048
     Dates: start: 20060501
  2. TARKA [Concomitant]
     Indication: HYPERTENSION
     Dosage: 1TAB PER DAY
     Route: 048
  3. DIFFU K [Concomitant]
     Indication: HYPOKALAEMIA
     Dosage: 40MG PER DAY
     Route: 048

REACTIONS (3)
  - COLITIS ULCERATIVE [None]
  - NECROTISING COLITIS [None]
  - OFF LABEL USE [None]
